FAERS Safety Report 7889357-7 (Version None)
Quarter: 2011Q4

REPORT INFORMATION
  Report Type: 
  Country: None (occurrence: None)
  Receive Date: 20111101
  Receipt Date: 20111019
  Transmission Date: 20120403
  Serious: Yes (Other)
  Sender: FDA-Public Use
  Company Number: 2011AT000271

PATIENT
  Age: 68 Year
  Sex: Male

DRUGS (3)
  1. KARDEGIC /00002703/ [Concomitant]
  2. SOTALOL [Concomitant]
  3. EDEX [Suspect]
     Indication: ERECTILE DYSFUNCTION
     Dosage: 10 UG; ICAN, 20 UG; ICAN
     Route: 017

REACTIONS (2)
  - DRUG INEFFECTIVE [None]
  - ATRIAL FIBRILLATION [None]
